FAERS Safety Report 8680596 (Version 3)
Quarter: 2012Q4

REPORT INFORMATION
  Report Type: 
  Country: US (occurrence: US)
  Receive Date: 20120724
  Receipt Date: 20121128
  Transmission Date: 20130627
  Serious: Yes (Hospitalization, Other)
  Sender: FDA-Public Use
  Company Number: US-ASTRAZENECA-2011SE54825

PATIENT
  Age: 50 Year
  Sex: Female

DRUGS (2)
  1. NEXIUM [Suspect]
     Route: 048
  2. UNSPECIFIED INGREDIENT [Suspect]

REACTIONS (12)
  - Blindness unilateral [Unknown]
  - Eye disorder [Unknown]
  - Colon cancer [Unknown]
  - Thrombosis [Unknown]
  - Eye haemorrhage [Unknown]
  - Malaise [Unknown]
  - Impaired driving ability [Unknown]
  - Feeling abnormal [Unknown]
  - Abdominal discomfort [Unknown]
  - Malaise [Unknown]
  - Drug dose omission [Unknown]
  - Drug ineffective [Unknown]
